FAERS Safety Report 6724589-2 (Version None)
Quarter: 2010Q2

REPORT INFORMATION
  Report Type: 
  Country: None (occurrence: None)
  Receive Date: 20100513
  Receipt Date: 20100506
  Transmission Date: 20101027
  Serious: Yes (Hospitalization)
  Sender: FDA-Public Use
  Company Number: PHHO2010BE06842

PATIENT
  Weight: 87 kg

DRUGS (5)
  1. NO TREATMENT RECEIVED NOMED [Suspect]
     Indication: RENAL TRANSPLANT
     Dosage: UNK
  2. NEORAL [Suspect]
     Indication: RENAL TRANSPLANT
     Dosage: UNK
     Dates: start: 20100205
  3. SIMULECT [Suspect]
  4. MYFORTIC [Suspect]
  5. METHYLPREDNISOLONE 4MG TAB [Suspect]

REACTIONS (4)
  - HAEMATURIA [None]
  - NEPHRECTOMY [None]
  - RENAL CYST [None]
  - URINARY TRACT INFECTION [None]
